FAERS Safety Report 10975876 (Version 27)
Quarter: 2019Q1

REPORT INFORMATION
  Report Type: Report from Study
  Country: CA (occurrence: CA)
  Receive Date: 20150401
  Receipt Date: 20190320
  Transmission Date: 20190417
  Serious: Yes (Hospitalization, Other)
  Sender: FDA-Public Use
  Company Number: PHHY2014CA142506

PATIENT
  Age: 76 Year
  Sex: Female

DRUGS (7)
  1. SANDOSTATIN LAR DEPOT [Suspect]
     Active Substance: OCTREOTIDE ACETATE
     Dosage: 60 MG, QMO (EVERY 4  WEEKS)
     Route: 030
  2. SANDOSTATIN LAR DEPOT [Suspect]
     Active Substance: OCTREOTIDE ACETATE
     Dosage: 40 MG, QMO, EVERY 4 WEEKS
     Route: 030
     Dates: start: 20141028
  3. OTEZLA [Suspect]
     Active Substance: APREMILAST
     Indication: PRODUCT USED FOR UNKNOWN INDICATION
     Dosage: UNK
     Route: 065
  4. SANDOSTATIN LAR DEPOT [Suspect]
     Active Substance: OCTREOTIDE ACETATE
     Dosage: 30 MG, QMO, EVERY 4 WEEKS
     Route: 030
  5. SANDOSTATIN LAR DEPOT [Suspect]
     Active Substance: OCTREOTIDE ACETATE
     Dosage: UNK
     Route: 030
     Dates: start: 20181218
  6. SANDOSTATIN LAR DEPOT [Suspect]
     Active Substance: OCTREOTIDE ACETATE
     Dosage: 60 MG, QMO (EVERY 4  WEEKS)
     Route: 030
     Dates: start: 20190212
  7. SANDOSTATIN LAR DEPOT [Suspect]
     Active Substance: OCTREOTIDE ACETATE
     Indication: NEUROENDOCRINE TUMOUR
     Dosage: 20 MG, QMO (ONCE A MONTH)
     Route: 030
     Dates: start: 20130219

REACTIONS (48)
  - High density lipoprotein increased [Unknown]
  - Blood pressure systolic increased [Unknown]
  - Body temperature decreased [Recovered/Resolved]
  - Fatigue [Not Recovered/Not Resolved]
  - Dizziness [Unknown]
  - Depression [Unknown]
  - Blood pressure decreased [Unknown]
  - Lower respiratory tract infection [Unknown]
  - Second primary malignancy [Unknown]
  - Metastases to liver [Unknown]
  - Metastases to gastrointestinal tract [Unknown]
  - Cardiac murmur [Unknown]
  - Excessive cerumen production [Unknown]
  - Needle issue [Unknown]
  - Rectal haemorrhage [Recovering/Resolving]
  - Cystitis [Unknown]
  - Malaise [Unknown]
  - Muscle strain [Unknown]
  - Polyp [Unknown]
  - Ocular hyperaemia [Unknown]
  - Nausea [Not Recovered/Not Resolved]
  - Diarrhoea [Unknown]
  - Malignant neoplasm progression [Recovering/Resolving]
  - Deafness [Recovered/Resolved]
  - Metastases to uterus [Unknown]
  - Body temperature increased [Unknown]
  - Gait inability [Unknown]
  - Skin exfoliation [Unknown]
  - Rash generalised [Unknown]
  - Haematochezia [Unknown]
  - Blood pressure increased [Unknown]
  - Blood glucose increased [Unknown]
  - Pruritus [Unknown]
  - Osteosclerosis [Unknown]
  - Pollakiuria [Not Recovered/Not Resolved]
  - Chest pain [Unknown]
  - Back pain [Unknown]
  - Skin lesion [Unknown]
  - Bronchitis [Recovering/Resolving]
  - Blood glucose decreased [Unknown]
  - Metastases to ovary [Unknown]
  - Intervertebral disc degeneration [Unknown]
  - Psoriasis [Recovering/Resolving]
  - Peripheral swelling [Unknown]
  - Constipation [Unknown]
  - Bile duct obstruction [Unknown]
  - Basal cell carcinoma [Unknown]
  - Influenza like illness [Unknown]

NARRATIVE: CASE EVENT DATE: 2014
